FAERS Safety Report 22815563 (Version 2)
Quarter: 2023Q4

REPORT INFORMATION
  Report Type: Spontaneous
  Country: US (occurrence: US)
  Receive Date: 20230811
  Receipt Date: 20231003
  Transmission Date: 20240109
  Serious: No
  Sender: FDA-Public Use
  Company Number: US-PFIZER INC-PV202200079359

PATIENT
  Age: 73 Year
  Sex: Female
  Weight: 64.399 kg

DRUGS (2)
  1. IBRANCE [Suspect]
     Active Substance: PALBOCICLIB
     Indication: Breast cancer metastatic
     Dosage: 100 MG, CYCLIC (1 TABLET DAILY FOR 21 DAYS OUT OF 28 DAY CYCLE)
     Route: 048
  2. LETROZOLE [Concomitant]
     Active Substance: LETROZOLE
     Indication: Breast cancer female
     Dosage: 2.5 MG, 1X/DAY, D1-28
     Route: 048
     Dates: start: 20211001

REACTIONS (2)
  - Visual impairment [Unknown]
  - Product dispensing error [Unknown]
